FAERS Safety Report 10917099 (Version 2)
Quarter: 2015Q2

REPORT INFORMATION
  Report Type: Spontaneous
  Country: BR (occurrence: BR)
  Receive Date: 20150316
  Receipt Date: 20150529
  Transmission Date: 20150821
  Serious: Yes (Other)
  Sender: FDA-Public Use
  Company Number: BR-009507513-1503BRA005323

PATIENT
  Age: 64 Year
  Sex: Female

DRUGS (13)
  1. LOSARTAN POTASSIUM. [Suspect]
     Active Substance: LOSARTAN POTASSIUM
     Indication: PRODUCT USED FOR UNKNOWN INDICATION
     Dosage: UNK
     Route: 048
  2. LIVIAL [Suspect]
     Active Substance: TIBOLONE
     Indication: PRODUCT USED FOR UNKNOWN INDICATION
     Dosage: UNK
     Route: 048
  3. ATENOLOL. [Concomitant]
     Active Substance: ATENOLOL
     Indication: PRODUCT USED FOR UNKNOWN INDICATION
     Dosage: UNK
     Route: 048
  4. SIMVASTATIN. [Suspect]
     Active Substance: SIMVASTATIN
     Indication: PRODUCT USED FOR UNKNOWN INDICATION
     Dosage: UNK
     Route: 048
  5. ZOLOFT [Concomitant]
     Active Substance: SERTRALINE HYDROCHLORIDE
     Indication: DEPRESSION
  6. HYDROCHLOROTHIAZIDE. [Concomitant]
     Active Substance: HYDROCHLOROTHIAZIDE
     Indication: PRODUCT USED FOR UNKNOWN INDICATION
     Dosage: UNK
     Route: 048
  7. OMEPRAZOLE. [Concomitant]
     Active Substance: OMEPRAZOLE
     Indication: PRODUCT USED FOR UNKNOWN INDICATION
     Dosage: UNK
     Route: 048
  8. NISULID [Concomitant]
     Active Substance: NIMESULIDE
     Indication: PRODUCT USED FOR UNKNOWN INDICATION
     Dosage: UNK
     Route: 048
  9. PRISTIQ EXTENDED RELEASE [Concomitant]
     Active Substance: DESVENLAFAXINE SUCCINATE
     Indication: DEPRESSION
     Dosage: STRENGTH  AND DAILLY TOTAL DOSE 1/2 DF, QD
  10. LYRICA [Concomitant]
     Active Substance: PREGABALIN
  11. SIMVASTATIN. [Suspect]
     Active Substance: SIMVASTATIN
     Dosage: 20 MG, QD
     Route: 048
  12. ENALAPRIL MALEATE. [Suspect]
     Active Substance: ENALAPRIL MALEATE
     Route: 048
  13. RIVOTRIL [Concomitant]
     Active Substance: CLONAZEPAM

REACTIONS (25)
  - Spinal operation [Unknown]
  - Spinal pain [Unknown]
  - Exostosis [Unknown]
  - Depression [Unknown]
  - Rheumatic disorder [Unknown]
  - Confusional state [Unknown]
  - Chills [Unknown]
  - Hunger [Unknown]
  - Malaise [Unknown]
  - Memory impairment [Unknown]
  - Vulvovaginal burning sensation [Unknown]
  - Intervertebral disc protrusion [Unknown]
  - Tremor [Unknown]
  - Colitis [Unknown]
  - Neck mass [Unknown]
  - Osteopenia [Unknown]
  - Arthralgia [Unknown]
  - Pain [Unknown]
  - Urinary tract infection [Unknown]
  - Fibromyalgia [Unknown]
  - Bone marrow disorder [Unknown]
  - Cyst [Unknown]
  - Weight decreased [Unknown]
  - Hypochondriasis [Unknown]
  - Polyp [Unknown]
